FAERS Safety Report 8972479 (Version 1)
Quarter: 2012Q4

REPORT INFORMATION
  Report Type: 
  Country: GB (occurrence: GB)
  Receive Date: 20121218
  Receipt Date: 20121218
  Transmission Date: 20130627
  Serious: Yes (Death, Hospitalization, Other)
  Sender: FDA-Public Use
  Company Number: GB-WATSON-2012-21947

PATIENT
  Age: 55 Year
  Sex: Female

DRUGS (10)
  1. TRIMETHOPRIM [Suspect]
     Indication: PRODUCT USED FOR UNKNOWN INDICATION
     Dosage: unknown
     Route: 065
     Dates: start: 201104
  2. EPREX [Suspect]
     Indication: RENAL FAILURE
     Dosage: 10000 IU, 3/week
     Route: 058
     Dates: start: 20120416, end: 20120926
  3. SULFAMETHOXAZOLE [Suspect]
     Indication: PRODUCT USED FOR UNKNOWN INDICATION
     Dosage: Dosage Form: Unspecified
     Route: 065
     Dates: start: 201104
  4. VITAMIN D /00107901/ [Concomitant]
     Indication: VITAMIN D DEFICIENCY
     Dosage: 20000 IU, 1/week
     Route: 065
     Dates: start: 201201
  5. ACYCLOVIR                          /00587301/ [Concomitant]
     Indication: HERPES ZOSTER
     Dosage: 200 mg, daily  Dosage Form: Unspecified
     Route: 048
     Dates: start: 201104
  6. ACYCLOVIR                          /00587301/ [Concomitant]
     Indication: PROPHYLAXIS
  7. CO-TRIMOXAZOLE                     /00086101/ [Concomitant]
     Indication: ANTIFUNGAL PROPHYLAXIS
     Dosage: 960mg 4/week  Dosage Form: Unspecified
     Route: 048
     Dates: start: 201104
  8. CIPROFLOXACIN [Concomitant]
     Indication: PRODUCT USED FOR UNKNOWN INDICATION
     Dosage: 250 mg, bid Dosage Form: Unspecified
     Route: 048
     Dates: start: 201112
  9. PENICILLIN V                       /00001801/ [Concomitant]
     Indication: PRODUCT USED FOR UNKNOWN INDICATION
     Dosage: 250 mg, bid  Dosage Form: Unspecified
     Route: 048
     Dates: start: 201104
  10. SODIUM BICARBONATE [Concomitant]
     Indication: METABOLIC ACIDOSIS
     Dosage: 1 g, tid   Dosage Form: Unspecified
     Route: 048
     Dates: start: 201206

REACTIONS (5)
  - Death [Fatal]
  - Aplasia pure red cell [Not Recovered/Not Resolved]
  - Hospitalisation [Unknown]
  - Haemoglobin decreased [Unknown]
  - Renal failure [Unknown]
